FAERS Safety Report 7453493-X (Version None)
Quarter: 2011Q2

REPORT INFORMATION
  Report Type: 
  Country: None (occurrence: None)
  Receive Date: 20110502
  Receipt Date: 20110221
  Transmission Date: 20111010
  Serious: No
  Sender: FDA-Public Use
  Company Number: US-ASTRAZENECA-2011SE09733

PATIENT
  Sex: Female

DRUGS (3)
  1. LIPITOR [Concomitant]
  2. CARDIZEM [Concomitant]
  3. NEXIUM [Suspect]
     Indication: ABDOMINAL DISCOMFORT
     Dosage: TAKE IT ONE HOUR PRIOR TO A MEAL
     Route: 048
     Dates: start: 20010101

REACTIONS (2)
  - DYSPEPSIA [None]
  - INAPPROPRIATE SCHEDULE OF DRUG ADMINISTRATION [None]
